FAERS Safety Report 23421315 (Version 1)
Quarter: 2024Q1

REPORT INFORMATION
  Report Type: Spontaneous
  Country: DE (occurrence: DE)
  Receive Date: 20240119
  Receipt Date: 20240119
  Transmission Date: 20240410
  Serious: Yes (Hospitalization)
  Sender: FDA-Public Use
  Company Number: DE-MYLANLABS-2024M1005315

PATIENT
  Age: 27 Year

DRUGS (2)
  1. HEPARIN [Suspect]
     Active Substance: HEPARIN SODIUM
     Indication: Cardiac ventricular thrombosis
     Dosage: UNK (HEPARIN BRIDGED ORAL PHENPROCOUMON ANTICOAGULATION)
     Route: 065
  2. PHENPROCOUMON [Suspect]
     Active Substance: PHENPROCOUMON
     Indication: Cardiac ventricular thrombosis
     Dosage: UNK (HEPARIN BRIDGED ORAL PHENPROCOUMON ANTICOAGULATION)
     Route: 048

REACTIONS (1)
  - Drug ineffective [Unknown]
